FAERS Safety Report 7092228-X (Version None)
Quarter: 2010Q4

REPORT INFORMATION
  Report Type: 
  Country: None (occurrence: None)
  Receive Date: 20101109
  Receipt Date: 20101104
  Transmission Date: 20110411
  Serious: Yes (Other)
  Sender: FDA-Public Use
  Company Number: AR-PFIZER INC-2010140659

PATIENT
  Age: 59 Year
  Sex: Male

DRUGS (3)
  1. ZOLOFT [Suspect]
     Indication: PANIC DISORDER
     Dosage: 50 MG, 1X/DAY, EVERY DAY
     Route: 048
     Dates: start: 20020101
  2. ZOLOFT [Suspect]
     Indication: ANXIETY
  3. LOSARTAN [Concomitant]
     Dosage: UNK
     Route: 048
     Dates: start: 20050101

REACTIONS (6)
  - ANXIETY [None]
  - BLOOD DISORDER [None]
  - FEAR [None]
  - IMMUNE SYSTEM DISORDER [None]
  - PANIC DISORDER [None]
  - THYROID NEOPLASM [None]
